FAERS Safety Report 9916408 (Version 1)
Quarter: 2014Q1

REPORT INFORMATION
  Report Type: Spontaneous
  Country: IN (occurrence: None)
  Receive Date: 20140219
  Receipt Date: 20140219
  Transmission Date: 20141002
  Serious: Yes (Other)
  Sender: FDA-Public Use
  Company Number: AUR-APL-2014-01810

PATIENT
  Age: 52 Year
  Sex: 0

DRUGS (2)
  1. CEFTRIAXONE [Suspect]
     Indication: PROPHYLAXIS
     Dosage: 1 GM, INJECTION
  2. CEFOPERAZONE W/SULBACTAM (CEFOPERAZONE W/SULBACTAM) [Concomitant]

REACTIONS (10)
  - Swelling face [None]
  - Haematuria [None]
  - Epistaxis [None]
  - Arteriovenous fistula site haematoma [None]
  - Hepatic function abnormal [None]
  - Blood bilirubin increased [None]
  - Alanine aminotransferase increased [None]
  - Aspartate aminotransferase increased [None]
  - Disseminated intravascular coagulation [None]
  - Haemolytic anaemia [None]
